FAERS Safety Report 6284818-9 (Version None)
Quarter: 2009Q3

REPORT INFORMATION
  Report Type: 
  Country: None (occurrence: None)
  Receive Date: 20090727
  Receipt Date: 20090720
  Transmission Date: 20100115
  Serious: Yes (Other)
  Sender: FDA-Public Use
  Company Number: US-AVENTIS-200916384US

PATIENT
  Sex: Female

DRUGS (3)
  1. LANTUS [Suspect]
     Indication: TYPE 2 DIABETES MELLITUS
     Route: 058
     Dates: start: 20080101
  2. OPTICLIK (INSULIN INJECTION PEN) [Suspect]
     Indication: TYPE 2 DIABETES MELLITUS
     Dates: start: 20080101
  3. HUMALOG [Concomitant]
     Dosage: DOSE: SLIDING SCALE

REACTIONS (2)
  - CATARACT [None]
  - VISUAL IMPAIRMENT [None]
